FAERS Safety Report 9068633 (Version 1)
Quarter: 2013Q1

REPORT INFORMATION
  Report Type: Spontaneous
  Country: US (occurrence: None)
  Receive Date: 20130212
  Receipt Date: 20130212
  Transmission Date: 20140127
  Serious: Yes (Other)
  Sender: FDA-Public Use
  Company Number: None

PATIENT
  Age: 56 Year
  Sex: Male
  Weight: 163.3 kg

DRUGS (1)
  1. TESTIM 1% AUXILIUM [Suspect]
     Indication: TESTIS CANCER
     Dosage: DAILY  OTHER
     Route: 050
     Dates: start: 20071110, end: 20130208

REACTIONS (2)
  - Aggression [None]
  - Anger [None]
